FAERS Safety Report 17129099 (Version 1)
Quarter: 2019Q4

REPORT INFORMATION
  Report Type: Spontaneous
  Country: US (occurrence: US)
  Receive Date: 20191208
  Receipt Date: 20191208
  Transmission Date: 20200122
  Serious: No
  Sender: FDA-Public Use
  Company Number: None

PATIENT
  Age: 70 Year
  Sex: Female

DRUGS (4)
  1. ADVIL [Concomitant]
     Active Substance: IBUPROFEN
  2. MAXALT [Concomitant]
     Active Substance: RIZATRIPTAN BENZOATE
  3. IRBESARTAN. [Suspect]
     Active Substance: IRBESARTAN
     Indication: HYPERTENSION
  4. ASPIRIN AS NEEDED [Concomitant]

REACTIONS (6)
  - Product quality issue [None]
  - Malaise [None]
  - Blood pressure inadequately controlled [None]
  - Product substitution issue [None]
  - Oedema peripheral [None]
  - Headache [None]

NARRATIVE: CASE EVENT DATE: 20191202
